FAERS Safety Report 5966027-3 (Version None)
Quarter: 2008Q4

REPORT INFORMATION
  Report Type: 
  Country: None (occurrence: None)
  Receive Date: 20081125
  Receipt Date: 20081120
  Transmission Date: 20090506
  Serious: Yes (Hospitalization)
  Sender: FDA-Public Use
  Company Number: JP-ASTRAZENECA-2008AP08226

PATIENT
  Age: 24080 Day
  Sex: Male
  Weight: 55 kg

DRUGS (4)
  1. CRESTOR [Suspect]
     Indication: HYPERLIPIDAEMIA
     Dosage: DRUG WITHDRAWN FOR UNKNOWN REASON
     Route: 048
     Dates: start: 20071126, end: 20080820
  2. CRESTOR [Suspect]
     Route: 048
     Dates: start: 20080916, end: 20080922
  3. LIPITOR [Suspect]
     Indication: HYPERLIPIDAEMIA
     Route: 048
     Dates: start: 20080820, end: 20080916
  4. ALLELOCK [Concomitant]
     Indication: DRUG ERUPTION
     Route: 048
     Dates: start: 20080916, end: 20080924

REACTIONS (1)
  - ERYTHEMA MULTIFORME [None]
